FAERS Safety Report 9030334 (Version 1)
Quarter: 2013Q1

REPORT INFORMATION
  Report Type: Spontaneous
  Country: DE (occurrence: DE)
  Receive Date: 20130122
  Receipt Date: 20130122
  Transmission Date: 20140127
  Serious: Yes (Other)
  Sender: FDA-Public Use
  Company Number: DE-PFIZER INC-2013019468

PATIENT
  Sex: 0

DRUGS (1)
  1. SUTENT [Suspect]

REACTIONS (3)
  - Pulmonary embolism [Unknown]
  - Rectal abscess [Unknown]
  - Orchitis [Unknown]
